FAERS Safety Report 9343089 (Version 1)
Quarter: 2013Q2

REPORT INFORMATION
  Report Type: Spontaneous
  Country: FR (occurrence: FR)
  Receive Date: 20130611
  Receipt Date: 20130611
  Transmission Date: 20140414
  Serious: Yes (Hospitalization)
  Sender: FDA-Public Use
  Company Number: PHHY2013FR059046

PATIENT
  Age: 42 Year
  Sex: Female

DRUGS (7)
  1. DOCETAXEL [Suspect]
     Indication: BREAST CANCER METASTATIC
     Dosage: 100 MG/M2, TOTAL
     Route: 042
     Dates: start: 20130419, end: 20130419
  2. FARMORUBICINE [Concomitant]
  3. 5 FLUORO URACIL [Concomitant]
  4. ENDOXAN [Concomitant]
  5. ROCEPHINE [Concomitant]
  6. ONDANSETRON [Concomitant]
  7. METHYLPREDNISOLONE [Concomitant]

REACTIONS (8)
  - Agranulocytosis [Recovered/Resolved]
  - Palmar-plantar erythrodysaesthesia syndrome [Recovered/Resolved]
  - Neuropathy peripheral [Recovered/Resolved]
  - Myalgia [Recovered/Resolved]
  - Neutropenia [Recovered/Resolved]
  - Pyrexia [Recovered/Resolved]
  - Skin exfoliation [Recovered/Resolved]
  - Dermatitis bullous [Recovered/Resolved]
